FAERS Safety Report 4384860-9 (Version None)
Quarter: 2004Q2

REPORT INFORMATION
  Report Type: 
  Country: None (occurrence: None)
  Receive Date: 20040623
  Receipt Date: 20040623
  Transmission Date: 20050107
  Serious: Yes (Life-Threatening, Hospitalization)
  Sender: FDA-Public Use
  Company Number: None

PATIENT
  Age: 65 Year
  Sex: Male
  Weight: 72.5755 kg

DRUGS (2)
  1. POTASSIUM CHLORIDE [Suspect]
  2. FUROSEMIDE [Suspect]

REACTIONS (2)
  - MEDICATION ERROR [None]
  - OEDEMA PERIPHERAL [None]
